FAERS Safety Report 9463580 (Version 1)
Quarter: 2013Q3

REPORT INFORMATION
  Report Type: Spontaneous
  Country: BR (occurrence: BR)
  Receive Date: 20130819
  Receipt Date: 20130819
  Transmission Date: 20140515
  Serious: Yes (Other)
  Sender: FDA-Public Use
  Company Number: BR-ACCORD-018957

PATIENT
  Age: 40 Year
  Sex: Female
  Weight: 85 kg

DRUGS (5)
  1. PACLITAXEL [Suspect]
     Indication: CHEMOTHERAPY
     Route: 042
     Dates: start: 20130618, end: 20130618
  2. CYCLOPHOSPHAMIDE [Suspect]
     Indication: CHEMOTHERAPY
     Route: 042
     Dates: start: 20130528, end: 20130528
  3. DOXORUBICIN [Concomitant]
     Dosage: DOXORUBICIN 50 MG
     Route: 042
     Dates: start: 20130528, end: 20130528
  4. DEXAMETHASONE [Concomitant]
     Dosage: DEXAMETHASONE 2.5 ML
     Route: 042
     Dates: start: 20130703, end: 20130706
  5. ONDANSETRON [Concomitant]
     Dosage: ONDANSETRON 8 MG
     Route: 042
     Dates: start: 20130703, end: 20130706

REACTIONS (8)
  - Hypersensitivity [Recovered/Resolved]
  - Erythema [Recovered/Resolved]
  - Tremor [Recovered/Resolved]
  - Dyspnoea [Recovered/Resolved]
  - Back pain [Recovered/Resolved]
  - Throat irritation [Recovered/Resolved]
  - Temperature intolerance [Recovered/Resolved]
  - Chest discomfort [Recovered/Resolved]
